FAERS Safety Report 5014936-4 (Version None)
Quarter: 2006Q2

REPORT INFORMATION
  Report Type: 
  Country: None (occurrence: None)
  Receive Date: 20060425
  Receipt Date: 20060208
  Transmission Date: 20061013
  Serious: No
  Sender: FDA-Public Use
  Company Number: 221925

PATIENT

DRUGS (2)
  1. XOLAIR [Suspect]
  2. ANTIHYPERTENSIVE MEDICATION NOS (ANTIHYPERTENSIVE NOS) [Concomitant]

REACTIONS (1)
  - DIZZINESS [None]
